FAERS Safety Report 14273557 (Version 2)
Quarter: 2018Q4

REPORT INFORMATION
  Report Type: Spontaneous
  Country: US (occurrence: US)
  Receive Date: 20171211
  Receipt Date: 20181106
  Transmission Date: 20190204
  Serious: Yes (Hospitalization, Other)
  Sender: FDA-Public Use
  Company Number: US-OTSUKA-2017_005293

PATIENT
  Age: 38 Year
  Sex: Male

DRUGS (7)
  1. LAMICTAL [Concomitant]
     Active Substance: LAMOTRIGINE
     Indication: PRODUCT USED FOR UNKNOWN INDICATION
     Dosage: 1 DF, QD
     Route: 065
  2. PERCOCET [Concomitant]
     Active Substance: ACETAMINOPHEN\OXYCODONE HYDROCHLORIDE
     Indication: PRODUCT USED FOR UNKNOWN INDICATION
     Dosage: UNK
     Route: 065
  3. ABILIFY [Suspect]
     Active Substance: ARIPIPRAZOLE
     Dosage: 10 MG, UNK
     Route: 065
  4. ABILIFY [Suspect]
     Active Substance: ARIPIPRAZOLE
     Indication: BIPOLAR DISORDER
     Dosage: 15 MG, UNK
     Route: 065
     Dates: start: 200804
  5. SINGULAIR [Concomitant]
     Active Substance: MONTELUKAST SODIUM
     Indication: PRODUCT USED FOR UNKNOWN INDICATION
     Dosage: UNK
     Route: 065
  6. ARIPIPRAZOLE. [Concomitant]
     Active Substance: ARIPIPRAZOLE
     Indication: PRODUCT USED FOR UNKNOWN INDICATION
     Dosage: UNK
     Route: 065
     Dates: start: 20150508, end: 20160429
  7. ABILIFY [Suspect]
     Active Substance: ARIPIPRAZOLE
     Dosage: 5 MG, UNK
     Route: 065
     Dates: end: 201605

REACTIONS (34)
  - Asthma [Unknown]
  - Joint stiffness [Unknown]
  - Pain [Unknown]
  - Bronchitis [Unknown]
  - Hyperlipidaemia [Unknown]
  - White blood cell count decreased [Unknown]
  - Irritability [Unknown]
  - Weight increased [Unknown]
  - Product dose omission [Unknown]
  - Bipolar I disorder [Unknown]
  - Blood pressure increased [Unknown]
  - Gambling disorder [Recovered/Resolved]
  - Obsessive-compulsive disorder [Unknown]
  - Acute sinusitis [Unknown]
  - Blood cholesterol increased [Unknown]
  - Joint dislocation [Unknown]
  - Blood bilirubin increased [Unknown]
  - Neutrophil count decreased [Unknown]
  - Erectile dysfunction [Unknown]
  - Blood glucose increased [Unknown]
  - Injury [Unknown]
  - Mean cell haemoglobin concentration decreased [Unknown]
  - Low density lipoprotein increased [Unknown]
  - Blood triglycerides increased [Unknown]
  - Fatigue [Unknown]
  - Insomnia [Unknown]
  - Clavicle fracture [Unknown]
  - Blood testosterone increased [Unknown]
  - Lymphocyte count increased [Unknown]
  - Dyspnoea [Unknown]
  - Arthralgia [Unknown]
  - Mean cell haemoglobin decreased [Unknown]
  - Ligament sprain [Unknown]
  - Overweight [Unknown]

NARRATIVE: CASE EVENT DATE: 20091228
